FAERS Safety Report 24313596 (Version 2)
Quarter: 2024Q4

REPORT INFORMATION
  Report Type: Spontaneous
  Country: US (occurrence: US)
  Receive Date: 20240912
  Receipt Date: 20241209
  Transmission Date: 20250115
  Serious: Yes (Other)
  Sender: BRISTOL-MYERS SQUIBB COMPANY
  Company Number: US-BRISTOL-MYERS SQUIBB COMPANY-2024-144770

PATIENT
  Age: 78 Year
  Sex: Female

DRUGS (2)
  1. REVLIMID [Suspect]
     Active Substance: LENALIDOMIDE
     Indication: Plasma cell myeloma
     Dosage: 1 TIME A DAY FOR 21 DAYS ON 7 DAYS OFF
     Route: 048
     Dates: start: 201103
  2. REVLIMID [Suspect]
     Active Substance: LENALIDOMIDE
     Dosage: 1 TIME A DAY FOR 21 DAYS ON 7 DAYS OFF
     Route: 048
     Dates: start: 202103

REACTIONS (1)
  - Neuropathy peripheral [Recovering/Resolving]

NARRATIVE: CASE EVENT DATE: 20230101
